FAERS Safety Report 16085114 (Version 1)
Quarter: 2019Q1

REPORT INFORMATION
  Report Type: Spontaneous
  Country: HU (occurrence: HU)
  Receive Date: 20190318
  Receipt Date: 20190318
  Transmission Date: 20190418
  Serious: Yes (Other)
  Sender: FDA-Public Use
  Company Number: HU-PFIZER INC-2019115505

PATIENT
  Age: 18 Year
  Sex: Male

DRUGS (4)
  1. SOLU-MEDROL [Suspect]
     Active Substance: METHYLPREDNISOLONE SODIUM SUCCINATE
     Dosage: 10 MG/KG, DAILY (DIVIDED THREE TIMES DAILY FOR 1 DAY)
     Route: 042
  2. SOLU-MEDROL [Suspect]
     Active Substance: METHYLPREDNISOLONE SODIUM SUCCINATE
     Dosage: 0.8 MG/KG, DAILY (DIVIDED TWICE DAILY FOR 5 DAYS)
     Route: 042
  3. ANTITHYMOCYTE IMMUNOGLOBULIN (RABBIT) [Concomitant]
     Active Substance: LAPINE T-LYMPHOCYTE IMMUNE GLOBULIN
     Dosage: 1.5 MG/KG, DAILY
     Route: 042
  4. SOLU-MEDROL [Suspect]
     Active Substance: METHYLPREDNISOLONE SODIUM SUCCINATE
     Indication: HEART TRANSPLANT
     Dosage: 500 MG, SINGLE
     Route: 042

REACTIONS (5)
  - Muscular weakness [Recovered/Resolved]
  - Aspiration [Recovered/Resolved]
  - Quadriparesis [Recovered/Resolved]
  - Myopathy [Recovered/Resolved]
  - Dysphagia [Recovered/Resolved]
